FAERS Safety Report 25521101 (Version 2)
Quarter: 2025Q3

REPORT INFORMATION
  Report Type: Spontaneous
  Country: US (occurrence: US)
  Receive Date: 20250705
  Receipt Date: 20250924
  Transmission Date: 20251021
  Serious: Yes (Other)
  Sender: SANOFI AVENTIS
  Company Number: US-SA-2025SA189406

PATIENT
  Age: 49 Year
  Sex: Female

DRUGS (2)
  1. KEVZARA [Suspect]
     Active Substance: SARILUMAB
     Indication: Rheumatoid arthritis
     Dosage: 200 MG, QOW
     Route: 058
     Dates: start: 202505
  2. RINVOQ [Concomitant]
     Active Substance: UPADACITINIB

REACTIONS (6)
  - Rheumatoid arthritis [Not Recovered/Not Resolved]
  - Arthralgia [Unknown]
  - Joint swelling [Unknown]
  - Condition aggravated [Unknown]
  - Pain in extremity [Unknown]
  - Pain [Unknown]

NARRATIVE: CASE EVENT DATE: 20250101
